FAERS Safety Report 5248344-8 (Version None)
Quarter: 2007Q1

REPORT INFORMATION
  Report Type: 
  Country: None (occurrence: None)
  Receive Date: 20070227
  Receipt Date: 20070221
  Transmission Date: 20070707
  Serious: Yes (Hospitalization)
  Sender: FDA-Public Use
  Company Number: IT-BOEHRINGER INGELHEIM PHARMACEUTICALS, INC.-2007-IT-00102IT

PATIENT
  Sex: Male

DRUGS (8)
  1. CATAPRESAN [Suspect]
     Indication: ESSENTIAL HYPERTENSION
     Route: 042
     Dates: start: 20061229, end: 20061229
  2. MICARDIS [Suspect]
     Route: 048
  3. CONGESCOR [Suspect]
     Indication: ESSENTIAL HYPERTENSION
     Route: 048
     Dates: start: 20060101, end: 20061229
  4. FUROSEMIDE [Concomitant]
     Route: 048
  5. GLICONORM [Concomitant]
     Dosage: 3 U ({ 1000)
     Route: 048
  6. VENITRIN [Concomitant]
     Route: 062
  7. CARDIRENE [Concomitant]
     Route: 048
  8. ALDACTONE [Concomitant]
     Route: 048

REACTIONS (6)
  - BRADYARRHYTHMIA [None]
  - FACE INJURY [None]
  - FALL [None]
  - LOSS OF CONSCIOUSNESS [None]
  - PARAESTHESIA [None]
  - TRANSIENT ISCHAEMIC ATTACK [None]
